FAERS Safety Report 8246995-X (Version None)
Quarter: 2012Q1

REPORT INFORMATION
  Report Type: 
  Country: None (occurrence: None)
  Receive Date: 20120330
  Receipt Date: 20120330
  Transmission Date: 20120608
  Serious: Yes (Life-Threatening)
  Sender: FDA-Public Use
  Company Number: None

PATIENT
  Age: 17 Year
  Sex: Female
  Weight: 58.967 kg

DRUGS (1)
  1. TRI-SPRINTEC [Suspect]
     Indication: DYSMENORRHOEA
     Dates: start: 20120205, end: 20120217

REACTIONS (9)
  - NASOPHARYNGITIS [None]
  - LOSS OF CONSCIOUSNESS [None]
  - DECREASED ACTIVITY [None]
  - MALAISE [None]
  - FATIGUE [None]
  - GAIT DISTURBANCE [None]
  - PULMONARY EMBOLISM [None]
  - DYSPNOEA [None]
  - DIZZINESS [None]
